FAERS Safety Report 4335288-9 (Version None)
Quarter: 2004Q2

REPORT INFORMATION
  Report Type: 
  Country: None (occurrence: None)
  Receive Date: 20040408
  Receipt Date: 20040408
  Transmission Date: 20050107
  Serious: Yes (Death)
  Sender: FDA-Public Use
  Company Number: None

PATIENT

DRUGS (2)
  1. INFUVITE PEDIATRIC [Suspect]
  2. AQUASOL A [Suspect]

REACTIONS (2)
  - MEDICATION ERROR [None]
  - NEPHROPATHY TOXIC [None]
